FAERS Safety Report 9210698 (Version 2)
Quarter: 2013Q2

REPORT INFORMATION
  Report Type: Spontaneous
  Country: US (occurrence: US)
  Receive Date: 20130404
  Receipt Date: 20130628
  Transmission Date: 20140414
  Serious: Yes (Death)
  Sender: FDA-Public Use
  Company Number: US-GLAXOSMITHKLINE-A1017869A

PATIENT
  Age: 75 Year
  Sex: Male

DRUGS (16)
  1. VOTRIENT [Suspect]
     Indication: FIBROSARCOMA
     Route: 048
     Dates: start: 20130201
  2. BLOOD PRESSURE MEDICATION [Concomitant]
  3. DEXAMETHASONE [Concomitant]
  4. METOPROLOL [Concomitant]
  5. SIMVASTATIN [Concomitant]
  6. BACLOFEN [Concomitant]
  7. BENZONATATE [Concomitant]
  8. MORPHINE [Concomitant]
  9. PLAVIX [Concomitant]
  10. VITAMIN C [Concomitant]
  11. OXYCODONE [Concomitant]
  12. ZOFRAN [Concomitant]
  13. COMPAZINE [Concomitant]
  14. ASPIRIN [Concomitant]
  15. SENNA [Concomitant]
  16. TAMSULOSIN [Concomitant]

REACTIONS (3)
  - Fibrosarcoma [Fatal]
  - Disease progression [Unknown]
  - Fatigue [Unknown]
